FAERS Safety Report 5206043-2 (Version None)
Quarter: 2007Q1

REPORT INFORMATION
  Report Type: 
  Country: None (occurrence: None)
  Receive Date: 20070111
  Receipt Date: 20070103
  Transmission Date: 20070707
  Serious: Yes (Life-Threatening, Hospitalization, Other)
  Sender: FDA-Public Use
  Company Number: US-BAXTER-600620

PATIENT
  Age: 69 Year
  Sex: Male

DRUGS (1)
  1. POLYGAM S/D [Suspect]
     Indication: PNEUMONIA
     Route: 042
     Dates: start: 20010411, end: 20010411

REACTIONS (1)
  - MYOCARDIAL INFARCTION [None]
